FAERS Safety Report 7569096-2 (Version None)
Quarter: 2011Q2

REPORT INFORMATION
  Report Type: 
  Country: None (occurrence: None)
  Receive Date: 20110623
  Receipt Date: 20110617
  Transmission Date: 20111010
  Serious: Yes (Other)
  Sender: FDA-Public Use
  Company Number: US-ABBOTT-11P-163-0733675-00

PATIENT
  Sex: Female
  Weight: 98.972 kg

DRUGS (19)
  1. ASPIRIN [Concomitant]
     Indication: PRODUCT USED FOR UNKNOWN INDICATION
     Dosage: LOW DOSE
  2. ACAI  NUTRITIONAL SUPPLEMENTS [Concomitant]
     Indication: MEDICAL DIET
  3. SAVELLA [Concomitant]
     Indication: FIBROMYALGIA
  4. FOLIC ACID [Concomitant]
     Indication: VITAMIN SUPPLEMENTATION
  5. BLUEBERRY EXTRACT [Concomitant]
     Indication: PRODUCT USED FOR UNKNOWN INDICATION
  6. TIZANIDINE HCL [Concomitant]
     Indication: FIBROMYALGIA
  7. HYDROCODONE [Concomitant]
     Indication: PAIN
  8. CELERY SEED EXTRACT [Concomitant]
     Indication: INFLAMMATION
  9. HUMIRA [Suspect]
     Indication: RHEUMATOID ARTHRITIS
     Dates: start: 20090101, end: 20101201
  10. METHOTREXATE [Concomitant]
     Indication: RHEUMATOID ARTHRITIS
     Dosage: WEEKLY, 6 TABS ON SUNDAY, 3 AM/ 3 PM
     Route: 048
  11. TIZANIDINE HCL [Concomitant]
     Indication: RHEUMATOID ARTHRITIS
  12. ATENOLOL [Concomitant]
     Indication: HYPERTENSION
  13. TRAZODONE HCL [Concomitant]
     Indication: INSOMNIA
  14. EXCEDRIN (MIGRAINE) [Concomitant]
     Indication: MIGRAINE
  15. HUMIRA [Suspect]
     Dates: start: 20101201, end: 20110301
  16. ALPRAZOLAM [Concomitant]
     Indication: ANXIOLYTIC THERAPY
  17. LEVOTHYROXINE SODIUM [Concomitant]
     Indication: HYPOTHYROIDISM
  18. OMEPRAZOLE [Concomitant]
     Indication: GASTRIC DISORDER
  19. ALBUTEROL [Concomitant]
     Indication: ASTHMA
     Route: 055

REACTIONS (10)
  - PYREXIA [None]
  - PAIN [None]
  - SENSATION OF HEAVINESS [None]
  - LACRIMATION INCREASED [None]
  - ASTHENIA [None]
  - CARDIAC ANEURYSM [None]
  - FEELING ABNORMAL [None]
  - RHINORRHOEA [None]
  - MEMORY IMPAIRMENT [None]
  - SEASONAL ALLERGY [None]
